FAERS Safety Report 12113978 (Version 1)
Quarter: 2016Q1

REPORT INFORMATION
  Report Type: Spontaneous
  Country: US (occurrence: US)
  Receive Date: 20160225
  Receipt Date: 20160225
  Transmission Date: 20160526
  Serious: No
  Sender: FDA-Public Use
  Company Number: US-PFIZER INC-2016098980

PATIENT
  Age: 76 Year
  Sex: Female

DRUGS (1)
  1. XELJANZ [Suspect]
     Active Substance: TOFACITINIB CITRATE
     Indication: EOSINOPHILIA
     Dosage: 5 MG, 2X/DAY
     Route: 048
     Dates: start: 201511

REACTIONS (4)
  - Product use issue [Unknown]
  - Rash [Unknown]
  - Disease recurrence [Unknown]
  - Pruritus [Unknown]
